FAERS Safety Report 9970755 (Version 2)
Quarter: 2014Q1

REPORT INFORMATION
  Report Type: Report from Study
  Country: US (occurrence: US)
  Receive Date: 20140306
  Receipt Date: 20140306
  Transmission Date: 20141002
  Serious: No
  Sender: FDA-Public Use
  Company Number: US-ABBVIE-11P-163-0728688-00

PATIENT
  Age: 64 Year
  Sex: Female

DRUGS (4)
  1. HUMIRA [Suspect]
     Indication: CROHN^S DISEASE
     Dates: start: 2009
  2. HUMIRA [Suspect]
  3. FOLIC ACID [Concomitant]
     Indication: CROHN^S DISEASE
  4. VITAMIN D3 [Concomitant]
     Indication: CROHN^S DISEASE

REACTIONS (6)
  - Abdominal distension [Not Recovered/Not Resolved]
  - Abdominal discomfort [Not Recovered/Not Resolved]
  - Urticaria [Recovering/Resolving]
  - Blood cholesterol increased [Not Recovered/Not Resolved]
  - Injection site bruising [Not Recovered/Not Resolved]
  - Injection site erythema [Not Recovered/Not Resolved]
